FAERS Safety Report 9873409 (Version 2)
Quarter: 2014Q1

REPORT INFORMATION
  Report Type: Spontaneous
  Country: US (occurrence: US)
  Receive Date: 20140206
  Receipt Date: 20140206
  Transmission Date: 20141002
  Serious: No
  Sender: FDA-Public Use
  Company Number: US-ACORDA-ACO_32647_2012

PATIENT
  Age: 62 Year
  Sex: Female

DRUGS (4)
  1. AMPYRA [Suspect]
     Indication: GAIT DISTURBANCE
     Dosage: 10 MG, BID
     Dates: start: 20120928, end: 201210
  2. INTERFERON BETA 1B [Concomitant]
     Indication: MULTIPLE SCLEROSIS
     Dosage: 250 MG, QOD
     Route: 058
     Dates: start: 2005
  3. MECLIZINE [Concomitant]
     Indication: VERTIGO
     Dosage: 25 MG, PRN
     Route: 048
     Dates: start: 2010
  4. LEVOTHYROXINE [Concomitant]
     Indication: HYPOTHYROIDISM
     Dosage: 75 ?G, QD
     Route: 048
     Dates: start: 2005

REACTIONS (1)
  - Dizziness [Recovered/Resolved]
